FAERS Safety Report 5284654-6 (Version None)
Quarter: 2007Q2

REPORT INFORMATION
  Report Type: 
  Country: None (occurrence: None)
  Receive Date: 20070403
  Receipt Date: 20070326
  Transmission Date: 20071010
  Serious: Yes (Hospitalization, Disabling, Other)
  Sender: FDA-Public Use
  Company Number: US-ELI_LILLY_AND_COMPANY-USA040771721

PATIENT
  Age: 27 Year
  Sex: Male
  Weight: 122.73 kg

DRUGS (3)
  1. KEFZOL [Suspect]
     Indication: SINUSITIS
     Dosage: 1.5 G, UNKNOWN
     Route: 030
     Dates: start: 20020921, end: 20020921
  2. TEQUIN [Concomitant]
     Indication: SINUSITIS
     Dosage: 400 MG, DAILY (1/D)
     Route: 048
     Dates: start: 20020921
  3. FLONASE [Concomitant]
     Dosage: UNK, 2/D
     Route: 045
     Dates: start: 20020921

REACTIONS (22)
  - ADVERSE DRUG REACTION [None]
  - ALLERGIC SINUSITIS [None]
  - ANTINUCLEAR ANTIBODY POSITIVE [None]
  - ASTHENIA [None]
  - CONFUSIONAL STATE [None]
  - DERMATOMYOSITIS [None]
  - DYSSTASIA [None]
  - FALL [None]
  - FATIGUE [None]
  - FLUSHING [None]
  - IMPAIRED WORK ABILITY [None]
  - INJECTION SITE INDURATION [None]
  - INJECTION SITE PAIN [None]
  - LACRIMATION INCREASED [None]
  - MEDICATION ERROR [None]
  - PAIN [None]
  - POLYMYOSITIS [None]
  - RASH MACULO-PAPULAR [None]
  - RETCHING [None]
  - RHABDOMYOLYSIS [None]
  - SINUSITIS [None]
  - WEIGHT DECREASED [None]
